FAERS Safety Report 8027749-6 (Version None)
Quarter: 2012Q1

REPORT INFORMATION
  Report Type: 
  Country: None (occurrence: None)
  Receive Date: 20120106
  Receipt Date: 20120106
  Transmission Date: 20120608
  Serious: Yes (Hospitalization)
  Sender: FDA-Public Use
  Company Number: None

PATIENT
  Sex: Female
  Weight: 81 kg

DRUGS (1)
  1. POMALIDOMIDE [Suspect]
     Indication: MULTIPLE MYELOMA
     Dosage: 2MG
     Route: 048

REACTIONS (4)
  - MULTIPLE MYELOMA [None]
  - INCORRECT DOSE ADMINISTERED [None]
  - PAIN [None]
  - CONSTIPATION [None]
